FAERS Safety Report 4556029-6 (Version None)
Quarter: 2005Q1

REPORT INFORMATION
  Report Type: 
  Country: None (occurrence: None)
  Receive Date: 20050118
  Receipt Date: 20041001
  Transmission Date: 20050727
  Serious: No
  Sender: FDA-Public Use
  Company Number: A001-002-006243

PATIENT
  Age: 75 Year
  Sex: Female
  Weight: 63 kg

DRUGS (12)
  1. ARICEPT [Suspect]
     Indication: AMNESIA
     Dosage: 10 MG , 1 IN 1 D, ORAL
     Route: 048
     Dates: start: 20040101
  2. DILANTIN [Suspect]
     Indication: CONVULSION
     Dosage: 300 MG , 2 IN 1 D ; 600 MG , 2 IN 1 D
     Dates: start: 20040101, end: 20040101
  3. DILANTIN [Suspect]
     Indication: CONVULSION
     Dosage: 300 MG , 2 IN 1 D ; 600 MG , 2 IN 1 D
     Dates: start: 20040101, end: 20040101
  4. TRILEPTAL [Suspect]
     Indication: CONVULSION
     Dates: start: 20040101, end: 20040101
  5. LEVOTHROID [Concomitant]
  6. PROTONIX [Concomitant]
  7. CELEBREX [Concomitant]
  8. ZOCOR [Concomitant]
  9. WARFARIN SODIUM [Concomitant]
  10. DIOVAN [Concomitant]
  11. LOPRESSOR [Concomitant]
  12. VITAMINS ( VITAMINS ) [Concomitant]

REACTIONS (3)
  - CONVULSION [None]
  - MEMORY IMPAIRMENT [None]
  - RASH [None]
